FAERS Safety Report 20177491 (Version 2)
Quarter: 2021Q4

REPORT INFORMATION
  Report Type: Spontaneous
  Country: IT (occurrence: IT)
  Receive Date: 20211213
  Receipt Date: 20211220
  Transmission Date: 20220303
  Serious: Yes (Other)
  Sender: FDA-Public Use
  Company Number: None

PATIENT
  Age: 1 Year
  Sex: Female

DRUGS (2)
  1. CARBOPLATIN [Suspect]
     Active Substance: CARBOPLATIN
     Indication: Astrocytoma, low grade
     Dosage: 1 DF, CYCLIC
     Route: 042
     Dates: start: 20210910, end: 20210910
  2. ETOPOSIDE [Suspect]
     Active Substance: ETOPOSIDE
     Indication: Astrocytoma, low grade
     Dosage: 1 DF, CYCLIC
     Route: 042
     Dates: start: 20210910, end: 20210910

REACTIONS (6)
  - Diarrhoea [Recovering/Resolving]
  - Infantile vomiting [Recovering/Resolving]
  - Pyrexia [Recovering/Resolving]
  - Neutropenia [Recovering/Resolving]
  - Decreased appetite [Recovering/Resolving]
  - Off label use [Unknown]

NARRATIVE: CASE EVENT DATE: 20210910
